FAERS Safety Report 11698652 (Version 1)
Quarter: 2015Q4

REPORT INFORMATION
  Report Type: Spontaneous
  Country: US (occurrence: US)
  Receive Date: 20151104
  Receipt Date: 20151104
  Transmission Date: 20160304
  Serious: No
  Sender: FDA-Public Use
  Company Number: US-DSJP-DSU-2015-113868

PATIENT
  Sex: Female
  Weight: 81.63 kg

DRUGS (5)
  1. METFORMIN [Concomitant]
     Active Substance: METFORMIN HYDROCHLORIDE
     Indication: DIABETES MELLITUS
     Dosage: 1 DF, QD
     Route: 048
  2. GABAPENTIN. [Concomitant]
     Active Substance: GABAPENTIN
     Indication: SEDATIVE THERAPY
     Dosage: 1 DF, QD
     Route: 048
  3. AZOR [Suspect]
     Active Substance: AMLODIPINE BESYLATE\OLMESARTAN MEDOXOMIL
     Indication: HYPERTENSION
     Dosage: HALF (40/10) MG, DAILY
     Route: 048
  4. WELCHOL [Concomitant]
     Active Substance: COLESEVELAM HYDROCHLORIDE
     Indication: BLOOD CHOLESTEROL INCREASED
     Dosage: 3750 MG, QD
     Route: 048
     Dates: start: 201504
  5. INVOKANA [Concomitant]
     Active Substance: CANAGLIFLOZIN
     Indication: DIABETES MELLITUS
     Dosage: 1 DF, QD
     Route: 048

REACTIONS (2)
  - No adverse event [Unknown]
  - Drug administration error [Unknown]
